FAERS Safety Report 5684885-7 (Version None)
Quarter: 2008Q1

REPORT INFORMATION
  Report Type: 
  Country: None (occurrence: None)
  Receive Date: 20080328
  Receipt Date: 20080325
  Transmission Date: 20080703
  Serious: Yes (Other)
  Sender: FDA-Public Use
  Company Number: US-ASTRAZENECA-2008UW06005

PATIENT
  Age: 55 Year
  Sex: Female
  Weight: 77.6 kg

DRUGS (2)
  1. CRESTOR [Suspect]
     Indication: BLOOD CHOLESTEROL INCREASED
     Route: 048
  2. PREMARIN [Concomitant]

REACTIONS (2)
  - FALL [None]
  - MYALGIA [None]
